FAERS Safety Report 9208306 (Version 1)
Quarter: 2013Q2

REPORT INFORMATION
  Report Type: Spontaneous
  Country: US (occurrence: US)
  Receive Date: 20130403
  Receipt Date: 20130403
  Transmission Date: 20140414
  Serious: Yes (Other)
  Sender: FDA-Public Use
  Company Number: US-TEVA-395566USA

PATIENT
  Age: 65 Year
  Sex: Female
  Weight: 65.83 kg

DRUGS (1)
  1. PROVIGIL [Suspect]
     Indication: FATIGUE
     Dosage: 400 MILLIGRAM DAILY;
     Route: 048

REACTIONS (4)
  - Thrombosis [Unknown]
  - Muscle spasms [Unknown]
  - Hypertension [Unknown]
  - Stress [Unknown]
